FAERS Safety Report 18208317 (Version 1)
Quarter: 2020Q3

REPORT INFORMATION
  Report Type: Spontaneous
  Country: FR (occurrence: FR)
  Receive Date: 20200828
  Receipt Date: 20200828
  Transmission Date: 20201103
  Serious: Yes (Hospitalization)
  Sender: FDA-Public Use
  Company Number: NVSC2020FR230737

PATIENT
  Age: 83 Year
  Sex: Female

DRUGS (10)
  1. LEVOFLOXACIN. [Suspect]
     Active Substance: LEVOFLOXACIN
     Dosage: 500 MG, QD
     Route: 048
     Dates: start: 20200623, end: 20200714
  2. TEICOPLANINE [Suspect]
     Active Substance: TEICOPLANIN
     Indication: SPONDYLITIS
     Dosage: UNK
     Route: 065
  3. LEVOFLOXACIN. [Suspect]
     Active Substance: LEVOFLOXACIN
     Indication: SPONDYLITIS
     Dosage: UNK
     Route: 065
  4. LOVENOX [Concomitant]
     Active Substance: ENOXAPARIN SODIUM
     Indication: SPONDYLITIS
     Dosage: UNK
     Route: 065
  5. LOVENOX [Concomitant]
     Active Substance: ENOXAPARIN SODIUM
     Indication: PROPHYLAXIS
     Dosage: UNK
     Route: 058
     Dates: start: 20200626
  6. RIFADINE [Suspect]
     Active Substance: RIFAMPIN
     Indication: SPONDYLITIS
     Dosage: UNK
     Route: 065
  7. RIFADINE [Suspect]
     Active Substance: RIFAMPIN
     Dosage: 900 MG, QD
     Route: 048
     Dates: start: 20200703, end: 20200714
  8. TEICOPLANINE [Suspect]
     Active Substance: TEICOPLANIN
     Dosage: 600 MG, QD
     Route: 042
     Dates: start: 20200625, end: 20200704
  9. OXYNORMORO [Concomitant]
     Active Substance: OXYCODONE HYDROCHLORIDE
     Indication: PAIN
     Dosage: 5 MG, Q6H
     Route: 048
     Dates: start: 20200625, end: 20200709
  10. OXYNORMORO [Concomitant]
     Active Substance: OXYCODONE HYDROCHLORIDE
     Indication: SPONDYLITIS
     Dosage: UNK
     Route: 065

REACTIONS (2)
  - Hyperbilirubinaemia [Recovering/Resolving]
  - Jaundice [Recovering/Resolving]

NARRATIVE: CASE EVENT DATE: 20200706
